FAERS Safety Report 6145780-2 (Version None)
Quarter: 2009Q2

REPORT INFORMATION
  Report Type: 
  Country: None (occurrence: None)
  Receive Date: 20090407
  Receipt Date: 20090331
  Transmission Date: 20091009
  Serious: Yes (Hospitalization)
  Sender: FDA-Public Use
  Company Number: US-ELI_LILLY_AND_COMPANY-US200904000154

PATIENT
  Sex: Male

DRUGS (9)
  1. BYETTA [Suspect]
     Dosage: 5 UG, EACH MORNING
     Dates: start: 20081121, end: 20090329
  2. BYETTA [Suspect]
     Dosage: 10 UG, EACH EVENING
     Dates: start: 20081121, end: 20090329
  3. CRESTOR [Concomitant]
  4. TESTOSTERONE [Concomitant]
  5. VITAMIN D [Concomitant]
     Dosage: UNK, WEEKLY (1/W)
  6. DEPAKOTE [Concomitant]
  7. METFORMIN HCL [Concomitant]
  8. NEXIUM [Concomitant]
  9. TERAZOSIN HCL [Concomitant]

REACTIONS (1)
  - PANCREATITIS [None]
